FAERS Safety Report 24335475 (Version 3)
Quarter: 2024Q4

REPORT INFORMATION
  Report Type: Report from Study
  Country: US (occurrence: US)
  Receive Date: 20240919
  Receipt Date: 20241002
  Transmission Date: 20250114
  Serious: Yes (Hospitalization, Other)
  Sender: ABBVIE
  Company Number: US-ABBVIE-5922772

PATIENT
  Sex: Female

DRUGS (1)
  1. SKYRIZI [Suspect]
     Active Substance: RISANKIZUMAB-RZAA
     Indication: Psoriatic arthropathy
     Route: 058
     Dates: start: 20220610, end: 202407

REACTIONS (24)
  - Sepsis [Recovering/Resolving]
  - Procedural pain [Unknown]
  - Incision site discharge [Unknown]
  - Post procedural infection [Recovering/Resolving]
  - Attention deficit hyperactivity disorder [Not Recovered/Not Resolved]
  - Post procedural complication [Recovering/Resolving]
  - Gastrointestinal erosion [Recovered/Resolved with Sequelae]
  - Hospitalisation [Recovered/Resolved with Sequelae]
  - White blood cell count decreased [Not Recovered/Not Resolved]
  - Memory impairment [Unknown]
  - Incision site abscess [Recovering/Resolving]
  - Fatigue [Unknown]
  - Somnolence [Unknown]
  - Fall [Not Recovered/Not Resolved]
  - Nausea [Unknown]
  - Gastrointestinal injury [Unknown]
  - Ligament sprain [Unknown]
  - Wound dehiscence [Not Recovered/Not Resolved]
  - Joint swelling [Recovered/Resolved]
  - Medical device pain [Unknown]
  - Gastrostomy tube removal [Not Recovered/Not Resolved]
  - Abdominal adhesions [Recovering/Resolving]
  - Purulent discharge [Not Recovered/Not Resolved]
  - Psoriasis [Recovered/Resolved]

NARRATIVE: CASE EVENT DATE: 20240101
